FAERS Safety Report 17467757 (Version 1)
Quarter: 2020Q1

REPORT INFORMATION
  Report Type: Spontaneous
  Country: US (occurrence: US)
  Receive Date: 20200226
  Receipt Date: 20200226
  Transmission Date: 20200409
  Serious: No
  Sender: FDA-Public Use
  Company Number: None

PATIENT
  Age: 23 Year
  Sex: Male
  Weight: 84.15 kg

DRUGS (6)
  1. DIGESTIVE ADVANTAGE DAILY PROBIOTIC GUMMY 50 BILLION CFU [Concomitant]
  2. HEARING AIDS [Concomitant]
  3. MELATONIN 4MG [Concomitant]
  4. C-PAP MACHINE [Concomitant]
     Active Substance: DEVICE
  5. FLUTICASONE PROPIONATE USP [Suspect]
     Active Substance: FLUTICASONE PROPIONATE
     Indication: HYPERSENSITIVITY
     Dosage: ?          OTHER STRENGTH:MCG;QUANTITY:2 SPRAY(S);OTHER ROUTE:IN THE NOSE?
     Dates: start: 20120730, end: 20200225
  6. L-THEANIN 200MG [Concomitant]

REACTIONS (1)
  - Insomnia [None]

NARRATIVE: CASE EVENT DATE: 20200225
